FAERS Safety Report 20322289 (Version 1)
Quarter: 2022Q1

REPORT INFORMATION
  Report Type: Spontaneous
  Country: US (occurrence: None)
  Receive Date: 20220110
  Receipt Date: 20220110
  Transmission Date: 20220423
  Serious: Yes (unspecified)
  Sender: FDA-Public Use
  Company Number: None

PATIENT
  Age: 4 Year
  Sex: Male
  Weight: 15.7 kg

DRUGS (2)
  1. BAMLANIVIMAB [Suspect]
     Active Substance: BAMLANIVIMAB
     Indication: Exposure to SARS-CoV-2
     Dosage: OTHER FREQUENCY : ONCE;?
     Route: 042
     Dates: start: 20220104, end: 20220104
  2. ETESEVIMAB [Suspect]
     Active Substance: ETESEVIMAB
     Indication: Exposure to SARS-CoV-2
     Dosage: OTHER FREQUENCY : ONCE;?
     Route: 042
     Dates: start: 20220104, end: 20220104

REACTIONS (5)
  - Infusion related reaction [None]
  - Cough [None]
  - Flushing [None]
  - Cyanosis [None]
  - Hypoxia [None]

NARRATIVE: CASE EVENT DATE: 20220104
